FAERS Safety Report 6509407-X (Version None)
Quarter: 2009Q4

REPORT INFORMATION
  Report Type: 
  Country: None (occurrence: None)
  Receive Date: 20091210
  Receipt Date: 20090717
  Transmission Date: 20100525
  Serious: Yes (Other)
  Sender: FDA-Public Use
  Company Number: CIP08002132

PATIENT
  Age: 59 Year
  Sex: Female

DRUGS (21)
  1. ACTONEL [Suspect]
     Indication: OSTEOPOROSIS
     Dosage: 35 MG, 1/WEEK, ORAL
     Route: 048
     Dates: start: 20031028, end: 20060803
  2. LOPRESSOR [Concomitant]
  3. THEOPHYLLINE [Concomitant]
  4. EFFEXOR XR (VENLAFAXNE HYDROCHLORIDE) [Concomitant]
  5. ALBUTEROL /00139501/ (SALBUTAMOL) [Concomitant]
  6. LEVOTHYROXINE SODIUM [Concomitant]
  7. ACETAMINOPHEN AND HYDROCODONE BITARTRATE [Concomitant]
  8. PULMICORT [Concomitant]
  9. PREMARIN [Concomitant]
  10. CLINORIL [Concomitant]
  11. SNIGULAIR /01362601/ (MONTELUKAST) [Concomitant]
  12. FOLIC ACID [Concomitant]
  13. CYANOCOBALAMIN [Concomitant]
  14. AMOXICILLIN [Concomitant]
  15. DIAZEPAM [Concomitant]
  16. ZOMIG [Concomitant]
  17. BUSPAR [Concomitant]
  18. AMITRIPTYLINE HCL [Concomitant]
  19. NEURONTIN [Concomitant]
  20. MIACALCIN [Concomitant]
  21. TRAZODONE HCL [Concomitant]

REACTIONS (19)
  - CELLULITIS [None]
  - DENTAL CARIES [None]
  - EAR PAIN [None]
  - ENAMEL ANOMALY [None]
  - ENDODONTIC PROCEDURE [None]
  - FACIAL PAIN [None]
  - GINGIVAL DISORDER [None]
  - GINGIVITIS [None]
  - HERPES ZOSTER [None]
  - ORAL DISORDER [None]
  - OSTEONECROSIS [None]
  - OSTEOPOROSIS [None]
  - PULPITIS DENTAL [None]
  - STOMATITIS [None]
  - TOOTH EROSION [None]
  - TOOTH EXTRACTION [None]
  - TOOTH FRACTURE [None]
  - TOOTH LOSS [None]
  - TOOTHACHE [None]
